FAERS Safety Report 9337633 (Version 1)
Quarter: 2013Q2

REPORT INFORMATION
  Report Type: Report from Study
  Country: US (occurrence: US)
  Receive Date: 20130607
  Receipt Date: 20130607
  Transmission Date: 20140414
  Serious: Yes (Hospitalization)
  Sender: FDA-Public Use
  Company Number: US-TEVA-410218USA

PATIENT
  Sex: Male

DRUGS (5)
  1. METHOTREXATE [Suspect]
  2. ADALIMUMAB [Suspect]
     Dosage: 160 MG, 4 IN 1 D
     Route: 058
     Dates: start: 20130320, end: 20130320
  3. ADALIMUMAB [Suspect]
     Dosage: 160 MILLIGRAM DAILY; TWO WEEKS LATER
     Route: 058
  4. ADALIMUMAB [Suspect]
     Route: 058
     Dates: end: 201304
  5. ADALIMUMAB [Suspect]
     Route: 058

REACTIONS (1)
  - Immunodeficiency [Recovered/Resolved]
